FAERS Safety Report 21921578 (Version 1)
Quarter: 2023Q1

REPORT INFORMATION
  Report Type: Spontaneous
  Country: US (occurrence: US)
  Receive Date: 20230127
  Receipt Date: 20230127
  Transmission Date: 20230417
  Serious: Yes (Hospitalization)
  Sender: FDA-Public Use
  Company Number: US-WELLSPRINGPHARMA-2023-US-001795

PATIENT
  Age: 70 Year
  Sex: Female
  Weight: 66.23 kg

DRUGS (6)
  1. BENZALKONIUM CHLORIDE\LIDOCAINE HYDROCHLORIDE [Suspect]
     Active Substance: BENZALKONIUM CHLORIDE\LIDOCAINE HYDROCHLORIDE
     Indication: Analgesic therapy
     Dosage: APPLIED TO SORES THREE TIMES PER DAY
     Route: 061
     Dates: start: 20230120, end: 20230123
  2. CALCIUM [Concomitant]
     Active Substance: CALCIUM
  3. VITAMIN D [Concomitant]
     Active Substance: VITAMIN D NOS
  4. ASPIRIN [Concomitant]
     Active Substance: ASPIRIN
  5. medication for blood clots [Concomitant]
  6. UNSPECIFIED INGREDIENT [Concomitant]
     Active Substance: UNSPECIFIED INGREDIENT

REACTIONS (4)
  - Application site haemorrhage [Unknown]
  - Application site wound [Not Recovered/Not Resolved]
  - Application site infection [Not Recovered/Not Resolved]
  - Condition aggravated [Not Recovered/Not Resolved]

NARRATIVE: CASE EVENT DATE: 20230123
